FAERS Safety Report 7268288-X (Version None)
Quarter: 2011Q1

REPORT INFORMATION
  Report Type: 
  Country: None (occurrence: None)
  Receive Date: 20110201
  Receipt Date: 20110124
  Transmission Date: 20110831
  Serious: Yes (Death)
  Sender: FDA-Public Use
  Company Number: US-GILEAD-2010-0033422

PATIENT
  Age: 56 Year
  Sex: Male

DRUGS (9)
  1. ACETYLSALICYLIC ACID SRT [Concomitant]
  2. TRIAMTERENE [Concomitant]
  3. SIMVASTATIN [Concomitant]
  4. VIREAD [Suspect]
     Indication: HIV INFECTION
     Route: 048
     Dates: start: 20051202, end: 20100518
  5. SUSTIVA [Suspect]
     Indication: HIV INFECTION
     Route: 048
     Dates: start: 20051202, end: 20100518
  6. DILTIAZEM [Concomitant]
  7. EMTRIVA [Suspect]
     Indication: HIV INFECTION
     Route: 048
     Dates: start: 20050616, end: 20100518
  8. INSULIN [Concomitant]
  9. GEMFIBROZIL [Concomitant]

REACTIONS (3)
  - ARRHYTHMIA [None]
  - CORONARY ARTERY DISEASE [None]
  - DIABETES MELLITUS [None]
